FAERS Safety Report 14798543 (Version 6)
Quarter: 2024Q1

REPORT INFORMATION
  Report Type: Spontaneous
  Country: NL (occurrence: NL)
  Receive Date: 20180424
  Receipt Date: 20240212
  Transmission Date: 20240410
  Serious: Yes (Other)
  Sender: FDA-Public Use
  Company Number: NL-AUROBINDO-AUR-APL-2018-020153

PATIENT
  Age: 69 Year
  Sex: Male

DRUGS (13)
  1. AMIODARONE [Interacting]
     Active Substance: AMIODARONE
     Indication: Ventricular arrhythmia
     Dosage: 200 MILLIGRAM, ONCE A DAY
     Route: 065
     Dates: start: 20150609, end: 20160620
  2. AMIODARONE [Interacting]
     Active Substance: AMIODARONE
     Indication: Cardiomyopathy
     Dosage: 600 MILLIGRAM, DAILY
     Route: 065
     Dates: start: 20160620
  3. AMIODARONE [Interacting]
     Active Substance: AMIODARONE
     Dosage: 900 MILLIGRAM, DAILY
     Route: 065
  4. RIFAMPIN [Interacting]
     Active Substance: RIFAMPIN
     Indication: Device related infection
     Dosage: 900 MILLIGRAM, ONCE A DAY
     Route: 065
     Dates: start: 20160610, end: 20160715
  5. RIFAMPIN [Interacting]
     Active Substance: RIFAMPIN
     Indication: Staphylococcal infection
  6. RIFAMPIN [Interacting]
     Active Substance: RIFAMPIN
     Indication: Corynebacterium infection
  7. RIFAMPIN [Interacting]
     Active Substance: RIFAMPIN
     Indication: Staphylococcal infection
  8. RIFAMPIN [Interacting]
     Active Substance: RIFAMPIN
     Indication: Device related infection
  9. VANCOMYCIN [Suspect]
     Active Substance: VANCOMYCIN
     Indication: Infection
     Dosage: UNK
     Route: 065
  10. VANCOMYCIN [Suspect]
     Active Substance: VANCOMYCIN
     Indication: Device related infection
  11. FLUCLOXACILLIN [Concomitant]
     Active Substance: FLUCLOXACILLIN
     Indication: Device related infection
     Dosage: UNK
     Route: 042
     Dates: start: 2016
  12. FLUCLOXACILLIN [Concomitant]
     Active Substance: FLUCLOXACILLIN
     Indication: Device related infection
  13. GENTAMICIN [Concomitant]
     Active Substance: GENTAMICIN
     Indication: Device related infection
     Dosage: TEMPORARY GENTAMICIN CEMENT SPACER WAS IMPLANTED ()
     Route: 065

REACTIONS (3)
  - Drug interaction [Recovered/Resolved]
  - Drug level decreased [Recovered/Resolved]
  - Drug level below therapeutic [Unknown]

NARRATIVE: CASE EVENT DATE: 20160620
